FAERS Safety Report 18779560 (Version 11)
Quarter: 2021Q4

REPORT INFORMATION
  Report Type: Spontaneous
  Country: US (occurrence: US)
  Receive Date: 20210125
  Receipt Date: 20211001
  Transmission Date: 20220303
  Serious: No
  Sender: FDA-Public Use
  Company Number: US-BIOGEN-2021BI00968371

PATIENT
  Age: 38 Year
  Sex: Female

DRUGS (1)
  1. TYSABRI [Suspect]
     Active Substance: NATALIZUMAB
     Indication: Multiple sclerosis
     Route: 065
     Dates: start: 20190610

REACTIONS (12)
  - Inappropriate schedule of product administration [Not Recovered/Not Resolved]
  - Product dose omission issue [Unknown]
  - Back pain [Not Recovered/Not Resolved]
  - Multiple sclerosis relapse [Not Recovered/Not Resolved]
  - Multiple sclerosis relapse [Unknown]
  - Malaise [Unknown]
  - Migraine [Unknown]
  - Restless legs syndrome [Not Recovered/Not Resolved]
  - Vision blurred [Not Recovered/Not Resolved]
  - Poor quality sleep [Not Recovered/Not Resolved]
  - Fatigue [Not Recovered/Not Resolved]
  - Anxiety [Not Recovered/Not Resolved]

NARRATIVE: CASE EVENT DATE: 20210101
